FAERS Safety Report 20511654 (Version 2)
Quarter: 2022Q1

REPORT INFORMATION
  Report Type: Spontaneous
  Country: US (occurrence: US)
  Receive Date: 20220224
  Receipt Date: 20220314
  Transmission Date: 20220424
  Serious: Yes (Other)
  Sender: FDA-Public Use
  Company Number: US-TEVA-2022-US-2009239

PATIENT
  Age: 61 Year
  Sex: Female

DRUGS (3)
  1. ZINC [Suspect]
     Active Substance: ZINC
     Indication: Mineral supplementation
     Dosage: TAKEN DAILY FOR MANY YEARS
     Route: 065
  2. VITAMIN B12 [Concomitant]
     Active Substance: CYANOCOBALAMIN
     Indication: Vitamin B12 deficiency
     Route: 030
  3. PREDNISONE [Concomitant]
     Active Substance: PREDNISONE
     Indication: Evidence based treatment
     Dosage: 40 MILLIGRAM DAILY;
     Route: 065

REACTIONS (3)
  - Copper deficiency [Recovering/Resolving]
  - Pancytopenia [Recovering/Resolving]
  - Paraesthesia [Not Recovered/Not Resolved]
